FAERS Safety Report 12068374 (Version 1)
Quarter: 2016Q1

REPORT INFORMATION
  Report Type: Spontaneous
  Country: US (occurrence: US)
  Receive Date: 20160211
  Receipt Date: 20160211
  Transmission Date: 20160526
  Serious: No
  Sender: FDA-Public Use
  Company Number: US-SMITH AND NEPHEW, INC-2015SMT00584

PATIENT
  Sex: Male
  Weight: 140.59 kg

DRUGS (9)
  1. BENAZEPRIL HCL [Concomitant]
     Active Substance: BENAZEPRIL HYDROCHLORIDE
     Dosage: 20 MG, 1X/DAY
  2. METOPROLOL SUCCINATE. [Concomitant]
     Active Substance: METOPROLOL SUCCINATE
     Dosage: 100 MG, 1X/DAY
  3. SILVERCEL [Concomitant]
     Dosage: UNK, 1X/DAY
     Route: 061
  4. METFORMIN [Concomitant]
     Active Substance: METFORMIN HYDROCHLORIDE
     Dosage: 1000 MG, 2X/DAY
  5. BENAZEPRIL HYDROCHLORIDE AND HYDROCHLOROTHIAZIDE [Concomitant]
     Active Substance: BENAZEPRIL HYDROCHLORIDE\HYDROCHLOROTHIAZIDE
     Dosage: UNK, 1X/DAY
  6. PRAVASTATIN [Concomitant]
     Active Substance: PRAVASTATIN\PRAVASTATIN SODIUM
     Dosage: 20 MG, 1X/DAY
  7. JANUVIA [Concomitant]
     Active Substance: SITAGLIPTIN PHOSPHATE
     Dosage: 100 MG, 1X/DAY
  8. LYRICA [Concomitant]
     Active Substance: PREGABALIN
     Dosage: 50 MG, 2X/DAY
  9. REGRANEX [Suspect]
     Active Substance: BECAPLERMIN
     Indication: DIABETIC ULCER
     Dosage: UNK, 1X/DAY
     Route: 061
     Dates: start: 20151109

REACTIONS (2)
  - Application site pain [Not Recovered/Not Resolved]
  - Application site irritation [Not Recovered/Not Resolved]

NARRATIVE: CASE EVENT DATE: 2015
